FAERS Safety Report 6403118-7 (Version None)
Quarter: 2009Q4

REPORT INFORMATION
  Report Type: 
  Country: None (occurrence: None)
  Receive Date: 20091015
  Receipt Date: 20091015
  Transmission Date: 20100525
  Serious: Yes (Other)
  Sender: FDA-Public Use
  Company Number: None

PATIENT
  Age: 70 Year
  Sex: Female
  Weight: 65.7716 kg

DRUGS (3)
  1. PREDNISOLONE ACETATE [Suspect]
     Indication: CATARACT OPERATION
     Dosage: 6/4 DROPS A DAY DAILY
  2. OFLOXACIN [Suspect]
     Indication: CATARACT OPERATION
     Dosage: 4 DROPS A DAY DAILY
  3. ACULAR [Concomitant]

REACTIONS (5)
  - EYE PAIN [None]
  - EYE SWELLING [None]
  - OCULAR HYPERAEMIA [None]
  - PHOTOPHOBIA [None]
  - VISUAL IMPAIRMENT [None]
